FAERS Safety Report 9885778 (Version 1)
Quarter: 2013Q4

REPORT INFORMATION
  Report Type: Spontaneous
  Country: US (occurrence: None)
  Receive Date: 20131127
  Receipt Date: 20131127
  Transmission Date: 20140711
  Serious: Yes (Other)
  Sender: FDA-Public Use
  Company Number: 223012LEO

PATIENT
  Age: 82 Year
  Sex: Female

DRUGS (1)
  1. PICATO GEL [Suspect]
     Indication: SQUAMOUS CELL CARCINOMA
     Route: 061
     Dates: start: 20130725, end: 20130727

REACTIONS (3)
  - Application site pustules [None]
  - Drug ineffective [None]
  - Off label use [None]
